FAERS Safety Report 4823730-6 (Version None)
Quarter: 2005Q4

REPORT INFORMATION
  Report Type: 
  Country: None (occurrence: None)
  Receive Date: 20051107
  Receipt Date: 20051024
  Transmission Date: 20060501
  Serious: Yes (Death)
  Sender: FDA-Public Use
  Company Number: GXKR2005GB01862

PATIENT
  Sex: Male

DRUGS (9)
  1. FUROSEMIDE [Suspect]
     Dosage: 40 MG, QD
     Dates: start: 20011129
  2. RAMIPRIL [Suspect]
     Dosage: 2.5 MG, QD
     Dates: start: 20001023
  3. WARFARIN [Suspect]
     Dosage: 3 MG
     Dates: start: 20000418
  4. BECLOMETHASONE DIPROPIONATE [Suspect]
     Dosage: 250 UG, TID
  5. PREDNISONE [Suspect]
     Dosage: 1 MG, TID, ORAL
     Route: 048
  6. ALBUTEROL [Suspect]
     Dosage: 5 MG/2.5 ML
     Dates: start: 20000606
  7. SPIRIVA [Suspect]
     Dosage: 18 UG, QD, INHALATION
     Route: 055
     Dates: start: 20030115
  8. THEOPHYLLINE [Suspect]
     Dosage: 400 MG, Q12H
  9. ALBUTEROL [Concomitant]

REACTIONS (1)
  - CHRONIC OBSTRUCTIVE PULMONARY DISEASE [None]
